FAERS Safety Report 19788108 (Version 3)
Quarter: 2021Q4

REPORT INFORMATION
  Report Type: Other
  Country: CA (occurrence: CA)
  Receive Date: 20210903
  Receipt Date: 20211126
  Transmission Date: 20220303
  Serious: Yes (Other)
  Sender: FDA-Public Use
  Company Number: CA-DUCHESNAY-2021CA000155

PATIENT

DRUGS (9)
  1. DOXYLAMINE SUCCINATE\PYRIDOXINE HYDROCHLORIDE [Suspect]
     Active Substance: DOXYLAMINE SUCCINATE\PYRIDOXINE HYDROCHLORIDE
     Indication: Product used for unknown indication
     Route: 064
  2. ASPIRIN [Suspect]
     Active Substance: ASPIRIN
     Indication: Product used for unknown indication
     Route: 064
  3. CHLORHEXIDINE GLUCONATE [Suspect]
     Active Substance: CHLORHEXIDINE GLUCONATE
     Indication: Product used for unknown indication
     Dosage: UNK
     Route: 064
  4. DEXPANTHENOL [Suspect]
     Active Substance: DEXPANTHENOL
     Indication: Product used for unknown indication
     Route: 064
  5. INSULIN NOS [Suspect]
     Active Substance: INSULIN NOS
     Indication: Product used for unknown indication
     Route: 064
  6. METFORMIN [Suspect]
     Active Substance: METFORMIN HYDROCHLORIDE
     Indication: Product used for unknown indication
     Route: 064
  7. METHYLDOPA [Suspect]
     Active Substance: METHYLDOPA
     Indication: Product used for unknown indication
     Route: 064
  8. NIFEDIPINE [Suspect]
     Active Substance: NIFEDIPINE
     Indication: Product used for unknown indication
     Route: 064
  9. SILDENAFIL [Suspect]
     Active Substance: SILDENAFIL
     Indication: Product used for unknown indication
     Dosage: UNK
     Route: 064

REACTIONS (1)
  - Premature baby [Unknown]
